FAERS Safety Report 20224411 (Version 1)
Quarter: 2021Q4

REPORT INFORMATION
  Report Type: Spontaneous
  Country: US (occurrence: None)
  Receive Date: 20211223
  Receipt Date: 20211223
  Transmission Date: 20220303
  Serious: Yes (Disabling)
  Sender: FDA-Public Use
  Company Number: None

PATIENT
  Age: 29 Year
  Sex: Female
  Weight: 54 kg

DRUGS (1)
  1. COPPER [Suspect]
     Active Substance: COPPER
     Indication: Contraception
     Dosage: OTHER FREQUENCY : CONTINOUS;?
     Route: 067

REACTIONS (8)
  - Mood swings [None]
  - Weight decreased [None]
  - Fatigue [None]
  - Diarrhoea [None]
  - Rash [None]
  - Amnesia [None]
  - Decreased appetite [None]
  - Nausea [None]

NARRATIVE: CASE EVENT DATE: 20201023
